FAERS Safety Report 10555921 (Version 1)
Quarter: 2014Q4

REPORT INFORMATION
  Report Type: Spontaneous
  Country: US (occurrence: US)
  Receive Date: 20141030
  Receipt Date: 20141030
  Transmission Date: 20150529
  Serious: No
  Sender: FDA-Public Use
  Company Number: US-PFIZER INC-2014297503

PATIENT
  Age: 80 Year
  Sex: Female
  Weight: 65.76 kg

DRUGS (1)
  1. VERAPAMIL HCL [Suspect]
     Active Substance: VERAPAMIL HYDROCHLORIDE
     Dosage: 80 MG, UNK

REACTIONS (3)
  - Drug intolerance [Unknown]
  - Blood test abnormal [Unknown]
  - Headache [Unknown]

NARRATIVE: CASE EVENT DATE: 20141013
